FAERS Safety Report 12920267 (Version 1)
Quarter: 2016Q4

REPORT INFORMATION
  Report Type: Spontaneous
  Country: FR (occurrence: FR)
  Receive Date: 20161107
  Receipt Date: 20161107
  Transmission Date: 20170207
  Serious: Yes (Hospitalization, Other)
  Sender: FDA-Public Use
  Company Number: FR-009507513-1510FRA012802

PATIENT
  Age: 85 Year
  Sex: Male

DRUGS (10)
  1. LEVOTHYROXINE SODIUM. [Suspect]
     Active Substance: LEVOTHYROXINE SODIUM
     Dosage: 100 ?G, QAM
     Route: 048
  2. POLYETHYLENE GLYCOL 3350. [Suspect]
     Active Substance: POLYETHYLENE GLYCOL 3350
     Indication: PRODUCT USED FOR UNKNOWN INDICATION
     Dosage: 10 G, OM
     Route: 048
  3. CLARINEX [Suspect]
     Active Substance: DESLORATADINE
     Dosage: 5 MG, QD
     Route: 048
  4. ALPRAZOLAM. [Concomitant]
     Active Substance: ALPRAZOLAM
  5. FLUINDIONE [Suspect]
     Active Substance: FLUINDIONE
     Dosage: 10 MG, QPM
     Route: 048
  6. MILNACIPRAN [Suspect]
     Active Substance: MILNACIPRAN
     Dosage: 25 MG, BID
     Route: 048
  7. HYDROCORTISONE. [Suspect]
     Active Substance: HYDROCORTISONE
  8. INEXIUM (ESOMEPRAZOLE MAGNESIUM) [Concomitant]
     Active Substance: ESOMEPRAZOLE MAGNESIUM
  9. ZOLPIDEM TARTRATE. [Suspect]
     Active Substance: ZOLPIDEM TARTRATE
     Dosage: 10 MG, QPM
     Route: 048
  10. EFFERALGAN [Concomitant]
     Active Substance: ACETAMINOPHEN

REACTIONS (6)
  - Muscle haemorrhage [Unknown]
  - International normalised ratio decreased [Unknown]
  - International normalised ratio increased [Unknown]
  - Haematoma [Unknown]
  - Subcutaneous haematoma [Unknown]
  - Anaemia [Unknown]
